FAERS Safety Report 5973010-0 (Version None)
Quarter: 2008Q4

REPORT INFORMATION
  Report Type: 
  Country: None (occurrence: None)
  Receive Date: 20081201
  Receipt Date: 20081126
  Transmission Date: 20090506
  Serious: Yes (Life-Threatening)
  Sender: FDA-Public Use
  Company Number: PHHY2008IT29661

PATIENT
  Sex: Male

DRUGS (1)
  1. RIVASTIGMINE TARTRATE [Suspect]

REACTIONS (3)
  - ASTHENIA [None]
  - HYPERHIDROSIS [None]
  - RESPIRATORY DISTRESS [None]
